FAERS Safety Report 8171689 (Version 2)
Quarter: 2012Q4

REPORT INFORMATION
  Report Type: 
  Country: US (occurrence: US)
  Receive Date: 20111006
  Receipt Date: 20120928
  Transmission Date: 20130627
  Serious: Yes (Hospitalization)
  Sender: FDA-Public Use
  Company Number: US-US-EMD SERONO, INC.-7086365

PATIENT
  Age: 35 None
  Sex: Male

DRUGS (3)
  1. REBIF [Suspect]
     Indication: MULTIPLE SCLEROSIS
     Route: 058
     Dates: start: 20081219
  2. REBIF [Suspect]
     Route: 058
     Dates: start: 2010, end: 20110323
  3. REBIF [Suspect]
     Route: 058
     Dates: start: 201104

REACTIONS (2)
  - Multiple sclerosis relapse [Recovering/Resolving]
  - JC virus test positive [Unknown]
